FAERS Safety Report 9370465 (Version 2)
Quarter: 2013Q3

REPORT INFORMATION
  Report Type: Report from Study
  Country: VE (occurrence: VE)
  Receive Date: 20130626
  Receipt Date: 20130729
  Transmission Date: 20140515
  Serious: Yes (Hospitalization, Other)
  Sender: FDA-Public Use
  Company Number: VE-ABBOTT-13P-178-1108102-00

PATIENT
  Sex: Female
  Weight: 84 kg

DRUGS (1)
  1. HUMIRA [Suspect]
     Indication: PSORIASIS
     Route: 058
     Dates: start: 20100923, end: 201210

REACTIONS (2)
  - Lipoma [Recovering/Resolving]
  - Back pain [Recovered/Resolved]
